FAERS Safety Report 4923873-2 (Version None)
Quarter: 2006Q1

REPORT INFORMATION
  Report Type: 
  Country: None (occurrence: None)
  Receive Date: 20060224
  Receipt Date: 20060224
  Transmission Date: 20060701
  Serious: Yes (Other)
  Sender: FDA-Public Use
  Company Number: None

PATIENT
  Age: 9 Year
  Sex: Female
  Weight: 32.659 kg

DRUGS (3)
  1. TUSSIN DM WALGREENS [Suspect]
     Indication: COUGH
     Dosage: 1TSP EVERY4'HOURS PO
     Route: 048
     Dates: start: 20051229, end: 20060219
  2. TUSSIN DM WALGREENS [Suspect]
     Indication: MALAISE
     Dosage: 1TSP EVERY4'HOURS PO
     Route: 048
     Dates: start: 20051229, end: 20060219
  3. FRUIT CHEWS [Suspect]
     Dosage: SMALL PACKET ANYTIME PO
     Route: 048
     Dates: start: 20050101, end: 20060219

REACTIONS (4)
  - PRURITUS [None]
  - RASH [None]
  - REACTION TO COLOURING [None]
  - URTICARIA [None]
